FAERS Safety Report 14377104 (Version 1)
Quarter: 2018Q1

REPORT INFORMATION
  Report Type: Spontaneous
  Country: US (occurrence: US)
  Receive Date: 20180111
  Receipt Date: 20180111
  Transmission Date: 20180509
  Serious: No
  Sender: FDA-Public Use
  Company Number: US-DRREDDYS-USA/USA/17/0088169

PATIENT
  Age: 65 Year
  Sex: Male
  Weight: 63.96 kg

DRUGS (2)
  1. NICOTINE. [Suspect]
     Active Substance: NICOTINE
     Indication: SMOKING CESSATION THERAPY
     Route: 061
  2. NICOTINE. [Suspect]
     Active Substance: NICOTINE
     Route: 061

REACTIONS (4)
  - Inappropriate schedule of drug administration [Unknown]
  - Treatment noncompliance [Unknown]
  - Drug effect increased [Unknown]
  - Skin burning sensation [Recovered/Resolved]
